FAERS Safety Report 9790103 (Version 1)
Quarter: 2013Q4

REPORT INFORMATION
  Report Type: Spontaneous
  Country: US (occurrence: None)
  Receive Date: 20131230
  Receipt Date: 20131230
  Transmission Date: 20140711
  Serious: No
  Sender: FDA-Public Use
  Company Number: None

PATIENT
  Age: 45 Year
  Sex: Female
  Weight: 54.43 kg

DRUGS (7)
  1. TECFIDERA [Suspect]
     Route: 048
     Dates: start: 20131114, end: 20131227
  2. CYMBALTA [Concomitant]
  3. ZOLPIDEM [Concomitant]
  4. XANAX [Concomitant]
  5. BACLOFEN [Concomitant]
  6. TRAMADOL [Concomitant]
  7. TIZANIDINE [Concomitant]

REACTIONS (3)
  - Flushing [None]
  - Weight increased [None]
  - Abdominal distension [None]
